FAERS Safety Report 5497942-5 (Version None)
Quarter: 2007Q4

REPORT INFORMATION
  Report Type: 
  Country: None (occurrence: None)
  Receive Date: 20071018
  Receipt Date: 20070814
  Transmission Date: 20080405
  Serious: Yes (Other)
  Sender: FDA-Public Use
  Company Number: USA-2007-0028819

PATIENT
  Sex: Male

DRUGS (3)
  1. HYDROMORPHONE HCL [Suspect]
     Indication: DRUG ABUSER
  2. MORPHINE SULFATE [Suspect]
     Indication: DRUG ABUSER
  3. MARIJUANA                                        (CANNABIS) [Suspect]
     Indication: DRUG ABUSER

REACTIONS (2)
  - FEELING ABNORMAL [None]
  - SUBSTANCE ABUSE [None]
